FAERS Safety Report 8131337-0 (Version None)
Quarter: 2012Q1

REPORT INFORMATION
  Report Type: 
  Country: None (occurrence: None)
  Receive Date: 20120213
  Receipt Date: 20120202
  Transmission Date: 20120608
  Serious: Yes (Other)
  Sender: FDA-Public Use
  Company Number: US-BRISTOL-MYERS SQUIBB COMPANY-16380628

PATIENT
  Age: 16 Year
  Sex: Female
  Weight: 49 kg

DRUGS (3)
  1. ORTHO TRI-CYCLEN [Concomitant]
     Indication: CONTRACEPTION
  2. ELAVIL [Concomitant]
  3. ABATACEPT SUBQ INJECTION 125MG/ML [Suspect]
     Indication: JUVENILE ARTHRITIS
     Dosage: OCT-2011: PREVIOUSLY TAKING ORENCIA
     Route: 058

REACTIONS (7)
  - TENDON DISORDER [None]
  - DIZZINESS [None]
  - INFLUENZA LIKE ILLNESS [None]
  - ARTHRALGIA [None]
  - MENSTRUATION IRREGULAR [None]
  - NAUSEA [None]
  - PAIN IN EXTREMITY [None]
